FAERS Safety Report 8602486-5 (Version None)
Quarter: 2012Q3

REPORT INFORMATION
  Report Type: 
  Country: None (occurrence: None)
  Receive Date: 20120817
  Receipt Date: 20120810
  Transmission Date: 20120928
  Serious: Yes (Hospitalization)
  Sender: FDA-Public Use
  Company Number: AU-SANOFI-AVENTIS-2012SA058686

PATIENT
  Age: 78 Year
  Sex: Female
  Weight: 53 kg

DRUGS (9)
  1. RIFAMPICIN [Suspect]
     Route: 065
     Dates: start: 20120411, end: 20120425
  2. CHOLECALCIFEROL [Concomitant]
  3. PYRIDOXINE HYDROCHLORIDE [Concomitant]
  4. PYRAZINAMIDE [Suspect]
     Route: 065
     Dates: start: 20120411, end: 20120425
  5. ETHAMBUTOL HYDROCHLORIDE [Concomitant]
  6. ISONIAZID [Concomitant]
  7. PERINDOPRIL ERBUMINE [Concomitant]
  8. ROSUVASTATIN [Concomitant]
  9. FLIXOTIDE ^GLAXO^ [Concomitant]

REACTIONS (4)
  - RASH PAPULAR [None]
  - NEUTROPENIA [None]
  - EYE SWELLING [None]
  - THROMBOCYTOPENIA [None]
